FAERS Safety Report 9459345 (Version 2)
Quarter: 2013Q4

REPORT INFORMATION
  Report Type: Spontaneous
  Country: US (occurrence: US)
  Receive Date: 20130815
  Receipt Date: 20131111
  Transmission Date: 20140711
  Serious: Yes (Other)
  Sender: FDA-Public Use
  Company Number: US-BIOGENIDEC-2013BI073449

PATIENT
  Age: 57 Year
  Sex: Female

DRUGS (1)
  1. AVONEX [Suspect]
     Indication: MULTIPLE SCLEROSIS
     Route: 030
     Dates: start: 20030321, end: 20110801

REACTIONS (3)
  - Lung neoplasm malignant [Not Recovered/Not Resolved]
  - Benign neoplasm [Unknown]
  - Influenza like illness [Recovered/Resolved]
